FAERS Safety Report 8213118-2 (Version None)
Quarter: 2012Q1

REPORT INFORMATION
  Report Type: 
  Country: None (occurrence: None)
  Receive Date: 20120315
  Receipt Date: 20120312
  Transmission Date: 20120608
  Serious: Yes (Other)
  Sender: FDA-Public Use
  Company Number: JP-BAXTER-2012BH007443

PATIENT
  Age: 19 Year
  Sex: Male

DRUGS (1)
  1. FEIBA [Suspect]
     Indication: PROPHYLAXIS
     Route: 042

REACTIONS (1)
  - FACTOR VIII INHIBITION [None]
